FAERS Safety Report 15320303 (Version 2)
Quarter: 2018Q3

REPORT INFORMATION
  Report Type: Report from Study
  Country: AU (occurrence: AU)
  Receive Date: 20180827
  Receipt Date: 20180830
  Transmission Date: 20181010
  Serious: Yes (Hospitalization, Other)
  Sender: FDA-Public Use
  Company Number: AU-ROCHE-1658241

PATIENT
  Age: 59 Year
  Sex: Female
  Weight: 73.9 kg

DRUGS (6)
  1. PLACEBO [Suspect]
     Active Substance: UNSPECIFIED INGREDIENT
     Indication: MALIGNANT MELANOMA
     Dosage: ON 29/OCT/2015, THE PATIENT RECEIVED THE MOST RECENT DOSE.?ON 09/AUG/2018, THE PATIENT RECEIVED THE
     Route: 048
     Dates: start: 20130530, end: 20180809
  2. PERINDOPRIL [Concomitant]
     Active Substance: PERINDOPRIL
     Indication: HYPERTENSION
     Route: 048
     Dates: start: 20180203
  3. CRYOTHERAPY [Concomitant]
     Active Substance: DEVICE
     Dosage: INDICATION : ACTINIC KERATOSIS ON LEFT EYEBROW
     Route: 050
     Dates: start: 20151016, end: 20151016
  4. VEMURAFENIB. [Suspect]
     Active Substance: VEMURAFENIB
     Indication: MALIGNANT MELANOMA
     Dosage: ON 29/OCT/2015, THE PATIENT RECEIVED THE MOST RECENT THERAPY WITH VEMURAFENIB?ON 16/AUG/2018, THE PA
     Route: 048
     Dates: start: 20130531, end: 20180817
  5. PERINDOPRIL [Concomitant]
     Active Substance: PERINDOPRIL
     Route: 065
     Dates: start: 20180202
  6. NEUROFEN [Concomitant]
     Active Substance: IBUPROFEN
     Route: 048
     Dates: start: 20151111

REACTIONS (2)
  - Lung adenocarcinoma [Not Recovered/Not Resolved]
  - Lung adenocarcinoma [Recovered/Resolved]

NARRATIVE: CASE EVENT DATE: 20151104
